FAERS Safety Report 6382701-1 (Version None)
Quarter: 2009Q3

REPORT INFORMATION
  Report Type: 
  Country: None (occurrence: None)
  Receive Date: 20090928
  Receipt Date: 20090928
  Transmission Date: 20100115
  Serious: Yes (Other)
  Sender: FDA-Public Use
  Company Number: None

PATIENT
  Age: 47 Year
  Sex: Female
  Weight: 66.2252 kg

DRUGS (1)
  1. DICLOFENAC SODIUM [Suspect]
     Indication: ARTHRALGIA
     Dosage: 75 MG 2X/DAY PO
     Route: 048
     Dates: start: 20090924, end: 20090925

REACTIONS (4)
  - DYSURIA [None]
  - HEADACHE [None]
  - NO THERAPEUTIC RESPONSE [None]
  - RESIDUAL URINE [None]
